FAERS Safety Report 18430898 (Version 4)
Quarter: 2020Q4

REPORT INFORMATION
  Report Type: Report from Study
  Country: US (occurrence: US)
  Receive Date: 20201027
  Receipt Date: 20201203
  Transmission Date: 20210114
  Serious: Yes (Hospitalization)
  Sender: FDA-Public Use
  Company Number: NVSC2020US287705

PATIENT
  Sex: Female

DRUGS (2)
  1. LASIX [Concomitant]
     Active Substance: FUROSEMIDE
     Indication: FLUID RETENTION
     Dosage: UNK, BID
     Route: 065
  2. ENTRESTO [Suspect]
     Active Substance: SACUBITRIL\VALSARTAN
     Indication: PRODUCT USED FOR UNKNOWN INDICATION
     Dosage: 50 MG, BID (24/26MG)
     Route: 048
     Dates: start: 202010

REACTIONS (4)
  - Weight fluctuation [Unknown]
  - Fatigue [Not Recovered/Not Resolved]
  - Cough [Not Recovered/Not Resolved]
  - Heart rate increased [Unknown]
